FAERS Safety Report 9611669 (Version 1)
Quarter: 2013Q4

REPORT INFORMATION
  Report Type: Spontaneous
  Country: US (occurrence: None)
  Receive Date: 20131002
  Receipt Date: 20131002
  Transmission Date: 20140711
  Serious: Yes (Disabling)
  Sender: FDA-Public Use
  Company Number: 1662291

PATIENT
  Sex: Male

DRUGS (1)
  1. GENTAMICIN SULFATE IN 0.9% SODIUM CHLORIDE INJECTION; SOLUTION [Suspect]
     Indication: PRODUCT USED FOR UNKNOWN INDICATION

REACTIONS (1)
  - Deafness [None]
